FAERS Safety Report 16531010 (Version 1)
Quarter: 2019Q3

REPORT INFORMATION
  Report Type: Spontaneous
  Country: AU (occurrence: AU)
  Receive Date: 20190704
  Receipt Date: 20190704
  Transmission Date: 20191004
  Serious: Yes (Other)
  Sender: FDA-Public Use
  Company Number: AU-ORION CORPORATION ORION PHARMA-TREX2019-2220

PATIENT
  Sex: Male

DRUGS (1)
  1. METHOTREXATE (TRADE NAME UNKNOWN) [Suspect]
     Active Substance: METHOTREXATE
     Indication: PRODUCT USED FOR UNKNOWN INDICATION
     Route: 065

REACTIONS (9)
  - Vomiting [Unknown]
  - Condition aggravated [Unknown]
  - Depression [Unknown]
  - Malaise [Unknown]
  - Nausea [Unknown]
  - Arthralgia [Unknown]
  - Drug intolerance [Unknown]
  - Mouth ulceration [Unknown]
  - Product dispensing error [Unknown]
